FAERS Safety Report 24973090 (Version 1)
Quarter: 2025Q1

REPORT INFORMATION
  Report Type: Spontaneous
  Country: US (occurrence: US)
  Receive Date: 20250216
  Receipt Date: 20250216
  Transmission Date: 20250409
  Serious: No
  Sender: ELI LILLY AND COMPANY
  Company Number: US-ELI_LILLY_AND_COMPANY-US202502009830

PATIENT
  Age: 67 Year
  Sex: Female

DRUGS (1)
  1. OLUMIANT [Suspect]
     Active Substance: BARICITINIB
     Indication: Rheumatoid arthritis
     Dosage: 2 MG, DAILY
     Route: 048

REACTIONS (2)
  - Back pain [Unknown]
  - Arthralgia [Unknown]
